FAERS Safety Report 4371003-0 (Version None)
Quarter: 2004Q2

REPORT INFORMATION
  Report Type: 
  Country: None (occurrence: None)
  Receive Date: 20040526
  Receipt Date: 20040512
  Transmission Date: 20050107
  Serious: Yes (Hospitalization)
  Sender: FDA-Public Use
  Company Number: WAES 0405USA00870

PATIENT
  Sex: Male

DRUGS (6)
  1. ZOCOR [Suspect]
     Dosage: 5 MG/PO
     Route: 048
  2. ASPIRIN [Suspect]
  3. LOPID [Suspect]
     Dosage: 600 MG
  4. MAVIK [Concomitant]
  5. ATENOLOL [Concomitant]
  6. HYDROCHLOROTHIAZIDE [Concomitant]

REACTIONS (1)
  - ARTHROPATHY [None]
